FAERS Safety Report 8413032-3 (Version None)
Quarter: 2012Q2

REPORT INFORMATION
  Report Type: 
  Country: None (occurrence: None)
  Receive Date: 20120605
  Receipt Date: 20120529
  Transmission Date: 20120825
  Serious: No
  Sender: FDA-Public Use
  Company Number: US-AMGEN-USASP2012033559

PATIENT
  Age: 63 Year
  Sex: Female

DRUGS (3)
  1. ENBREL [Suspect]
     Indication: RHEUMATOID ARTHRITIS
     Dosage: 50 MG, QWK
     Dates: start: 20110101
  2. TRAMADOL HCL [Concomitant]
     Dosage: UNK
  3. PROLIA [Suspect]
     Dosage: 60 MG, Q6MO
     Dates: start: 20120426

REACTIONS (4)
  - WALKING AID USER [None]
  - GAIT DISTURBANCE [None]
  - ARTHRALGIA [None]
  - JOINT STIFFNESS [None]
